FAERS Safety Report 25761123 (Version 1)
Quarter: 2025Q3

REPORT INFORMATION
  Report Type: Other
  Country: EU (occurrence: EU)
  Receive Date: 20250904
  Receipt Date: 20250904
  Transmission Date: 20251020
  Serious: Yes (Hospitalization, Other)
  Sender: CREEKWOOD PHARMACEUTICALS LLC
  Company Number: EU-Creekwood Pharmaceuticals LLC-2183821

PATIENT
  Age: 9 Decade
  Sex: Female

DRUGS (9)
  1. HYDROXYCHLOROQUINE SULFATE [Suspect]
     Active Substance: HYDROXYCHLOROQUINE SULFATE
     Indication: Rheumatoid arthritis
  2. METRONIDAZOLE [Suspect]
     Active Substance: METRONIDAZOLE
  3. GABAPENTIN [Concomitant]
     Active Substance: GABAPENTIN
  4. HYDROCHLOROTHIAZIDE [Concomitant]
     Active Substance: HYDROCHLOROTHIAZIDE
  5. AMOXICILLIN [Concomitant]
     Active Substance: AMOXICILLIN
  6. PREDNISONE [Concomitant]
     Active Substance: PREDNISONE
  7. ENALAPRILAT [Concomitant]
     Active Substance: ENALAPRILAT
  8. SIMVASTATIN [Concomitant]
     Active Substance: SIMVASTATIN
  9. LEFLUNOMIDE [Suspect]
     Active Substance: LEFLUNOMIDE

REACTIONS (2)
  - Neurotoxicity [Recovering/Resolving]
  - Polyneuropathy [Not Recovered/Not Resolved]
